FAERS Safety Report 5902696-1 (Version None)
Quarter: 2008Q3

REPORT INFORMATION
  Report Type: 
  Country: None (occurrence: None)
  Receive Date: 20080930
  Receipt Date: 20080917
  Transmission Date: 20090109
  Serious: Yes (Hospitalization)
  Sender: FDA-Public Use
  Company Number: AT-RANBAXY-2008RR-18117

PATIENT
  Age: 34 Year
  Sex: Male

DRUGS (4)
  1. TOPIRABAX 25MG [Suspect]
     Indication: BINGE EATING
     Dosage: 100 MG, BID
  2. ESCITALOPRAM [Suspect]
     Indication: DEPRESSION
     Dosage: 10 MG, BID
  3. RISPERIDONE [Concomitant]
  4. CHLORPROTHIXENE [Concomitant]

REACTIONS (2)
  - DRUG INTERACTION [None]
  - MANIA [None]
